FAERS Safety Report 9266630 (Version 2)
Quarter: 2013Q2

REPORT INFORMATION
  Report Type: Spontaneous
  Country: US (occurrence: US)
  Receive Date: 20130502
  Receipt Date: 20130510
  Transmission Date: 20140414
  Serious: Yes (Hospitalization, Other)
  Sender: FDA-Public Use
  Company Number: US-BAYER-2013-051373

PATIENT
  Age: 40 Year
  Sex: Female

DRUGS (9)
  1. YASMIN [Suspect]
  2. YAZ [Suspect]
  3. OCELLA [Suspect]
  4. DEMEROL [Concomitant]
  5. BENADRYL [Concomitant]
  6. IBUPROFEN [Concomitant]
  7. ATIVAN [Concomitant]
  8. LYRICA [Concomitant]
  9. MULTIVITAMIN [Concomitant]

REACTIONS (9)
  - Pulmonary embolism [None]
  - Injury [None]
  - Pain [None]
  - General physical health deterioration [None]
  - Pulmonary embolism [None]
  - Emotional distress [None]
  - Anxiety [None]
  - Anhedonia [None]
  - Pain [None]
